FAERS Safety Report 24584178 (Version 2)
Quarter: 2024Q4

REPORT INFORMATION
  Report Type: Report from Study
  Country: GB (occurrence: GB)
  Receive Date: 20241106
  Receipt Date: 20241113
  Transmission Date: 20250114
  Serious: Yes (Other)
  Sender: SAMSUNG BIOEPIS
  Company Number: GB-SAMSUNG BIOEPIS-SB-2024-32836

PATIENT
  Age: 69 Year
  Sex: Female

DRUGS (3)
  1. ETANERCEPT [Suspect]
     Active Substance: ETANERCEPT
     Indication: Rheumatoid arthritis
     Route: 058
     Dates: start: 20240909
  2. ETANERCEPT [Suspect]
     Active Substance: ETANERCEPT
     Route: 058
     Dates: start: 20240930
  3. COVID-19 VACCINE NOS [Suspect]
     Active Substance: COVID-19 VACCINE
     Indication: Product used for unknown indication
     Dates: start: 20241025

REACTIONS (13)
  - Loss of consciousness [Unknown]
  - Immobile [Unknown]
  - Tremor [Recovered/Resolved]
  - Lower respiratory tract infection [Unknown]
  - Pain in extremity [Unknown]
  - Feeling cold [Unknown]
  - Pain [Unknown]
  - Oropharyngeal pain [Recovered/Resolved]
  - Decreased appetite [Unknown]
  - Arthralgia [Unknown]
  - Malaise [Unknown]
  - Fall [Unknown]
  - COVID-19 [Unknown]

NARRATIVE: CASE EVENT DATE: 20241025
